FAERS Safety Report 9133719 (Version 1)
Quarter: 2013Q1

REPORT INFORMATION
  Report Type: Spontaneous
  Country: US (occurrence: US)
  Receive Date: 20130302
  Receipt Date: 20130302
  Transmission Date: 20140127
  Serious: No
  Sender: FDA-Public Use
  Company Number: US-ENDO PHARMACEUTICALS INC.-FRVA20110001

PATIENT
  Age: 49 Year
  Sex: Female
  Weight: 52.21 kg

DRUGS (2)
  1. FROVA [Suspect]
     Indication: MIGRAINE
     Dosage: 2.5 MG 3-4X PER MONTH
     Route: 048
     Dates: start: 2008
  2. INDOMETHACIN [Suspect]
     Indication: MIGRAINE
     Dosage: 3-4X PER MONTH
     Route: 065
     Dates: start: 2008

REACTIONS (2)
  - Mean cell haemoglobin increased [Not Recovered/Not Resolved]
  - Mean cell volume increased [Not Recovered/Not Resolved]
